FAERS Safety Report 21931613 (Version 1)
Quarter: 2023Q1

REPORT INFORMATION
  Report Type: Spontaneous
  Country: US (occurrence: US)
  Receive Date: 20230131
  Receipt Date: 20230131
  Transmission Date: 20230418
  Serious: Yes (Death, Hospitalization, Other)
  Sender: FDA-Public Use
  Company Number: US-GLAND PHARMA LIMITED-2023US000255

PATIENT
  Age: 37 Year
  Sex: Male
  Weight: 41 kg

DRUGS (16)
  1. MIDAZOLAM [Suspect]
     Active Substance: MIDAZOLAM
     Indication: Sedation
     Dosage: 3 MG
     Route: 042
  2. SUCCINYLCHOLINE CHLORIDE [Suspect]
     Active Substance: SUCCINYLCHOLINE CHLORIDE
     Indication: Anaesthesia
     Dosage: 80 MG
     Route: 065
  3. ARTICAINE [Suspect]
     Active Substance: ARTICAINE
     Indication: Local anaesthesia
     Dosage: 288 MG
     Route: 002
  4. LIDOCAINE [Suspect]
     Active Substance: LIDOCAINE
     Indication: Local anaesthesia
     Dosage: 72 MG
     Route: 002
  5. EPINEPHRINE [Suspect]
     Active Substance: EPINEPHRINE
     Indication: Local anaesthesia
     Dosage: 108 UG
     Route: 002
  6. PROPOFOL [Suspect]
     Active Substance: PROPOFOL
     Indication: Anaesthesia
     Dosage: 80 MG
     Route: 065
  7. PROPOFOL [Suspect]
     Active Substance: PROPOFOL
     Dosage: 50 MG
     Route: 065
  8. OXYCODONE [Concomitant]
     Active Substance: OXYCODONE
     Indication: Product used for unknown indication
     Dosage: UNK
     Route: 065
  9. DOCUSATE [Concomitant]
     Active Substance: DOCUSATE
     Indication: Product used for unknown indication
     Dosage: UNK
     Route: 065
  10. SENNA [Concomitant]
     Active Substance: SENNA LEAF\SENNOSIDES\SENNOSIDES A AND B
     Indication: Product used for unknown indication
     Dosage: UNK
     Route: 065
  11. DENTA 5000 PLUS [Concomitant]
     Active Substance: SODIUM FLUORIDE
     Indication: Product used for unknown indication
     Dosage: UNK
     Route: 065
  12. OXYGEN [Concomitant]
     Active Substance: OXYGEN
     Indication: Oxygen therapy
     Dosage: 3 L/MIN (VIA NASAL CANNULA)
     Route: 045
  13. OXYGEN [Concomitant]
     Active Substance: OXYGEN
     Dosage: 8 L/MIN VIA FULL FACE MASK
     Route: 065
  14. OXYGEN [Concomitant]
     Active Substance: OXYGEN
     Dosage: 6-8 L VIA NASAL HOOD
     Route: 045
  15. OXYGEN [Concomitant]
     Active Substance: OXYGEN
     Dosage: 10 L/MIN VIA FULL FACE MASK
     Route: 065
  16. SODIUM CHLORIDE [Concomitant]
     Active Substance: SODIUM CHLORIDE
     Indication: Product used for unknown indication
     Dosage: 200 ML, Q1HR
     Route: 042

REACTIONS (9)
  - Craniocerebral injury [Fatal]
  - Fall [Unknown]
  - Electrocardiogram ST segment elevation [Recovered/Resolved]
  - Local anaesthetic systemic toxicity [Unknown]
  - Hypoxia [Recovered/Resolved]
  - Arrhythmia [Unknown]
  - Pneumonitis aspiration [Unknown]
  - Pneumonia [Unknown]
  - Hypersomnia [Unknown]
